FAERS Safety Report 5369036-0 (Version None)
Quarter: 2007Q2

REPORT INFORMATION
  Report Type: 
  Country: None (occurrence: None)
  Receive Date: 20070625
  Receipt Date: 20070620
  Transmission Date: 20071010
  Serious: Yes (Death, Other)
  Sender: FDA-Public Use
  Company Number: DE-BRISTOL-MYERS SQUIBB COMPANY-13820022

PATIENT
  Sex: Male

DRUGS (1)
  1. SPRYCEL [Suspect]

REACTIONS (3)
  - DEATH [None]
  - INFECTION [None]
  - PYREXIA [None]
